FAERS Safety Report 4830287-2 (Version None)
Quarter: 2005Q4

REPORT INFORMATION
  Report Type: 
  Country: None (occurrence: None)
  Receive Date: 20051114
  Receipt Date: 20051102
  Transmission Date: 20060501
  Serious: Yes (Hospitalization)
  Sender: FDA-Public Use
  Company Number: 2005146476

PATIENT
  Age: 6 Year
  Sex: Female
  Weight: 16.2 kg

DRUGS (5)
  1. GENOTROPIN [Suspect]
     Indication: HYPOPITUITARISM
     Dosage: SEE IMAGE
     Route: 058
     Dates: start: 20020731, end: 20030121
  2. GENOTROPIN [Suspect]
     Indication: HYPOPITUITARISM
     Dosage: SEE IMAGE
     Route: 058
     Dates: start: 20030122, end: 20030717
  3. GENOTROPIN [Suspect]
     Indication: HYPOPITUITARISM
     Dosage: SEE IMAGE
     Route: 058
     Dates: start: 20030718, end: 20040114
  4. GENOTROPIN [Suspect]
     Indication: HYPOPITUITARISM
     Dosage: SEE IMAGE
     Route: 058
     Dates: start: 20040115, end: 20040803
  5. GENOTROPIN [Suspect]
     Indication: HYPOPITUITARISM
     Dosage: SEE IMAGE
     Route: 058
     Dates: start: 20040804

REACTIONS (7)
  - CONVERSION DISORDER [None]
  - DYSPEPSIA [None]
  - OESOPHAGEAL PAIN [None]
  - PYREXIA [None]
  - SOMATOFORM DISORDER [None]
  - VOMITING [None]
  - WEIGHT GAIN POOR [None]
